FAERS Safety Report 20214244 (Version 1)
Quarter: 2021Q4

REPORT INFORMATION
  Report Type: Spontaneous
  Country: US (occurrence: None)
  Receive Date: 20211221
  Receipt Date: 20211221
  Transmission Date: 20220303
  Serious: Yes (Other)
  Sender: FDA-Public Use
  Company Number: None

PATIENT
  Age: 40 Year
  Sex: Female
  Weight: 72 kg

DRUGS (6)
  1. DIETARY SUPPLEMENT [Suspect]
     Active Substance: DIETARY SUPPLEMENT
     Indication: Upper respiratory tract infection
  2. DIETARY SUPPLEMENT [Suspect]
     Active Substance: DIETARY SUPPLEMENT
     Indication: Fatigue
  3. DELSYM [Suspect]
     Active Substance: DEXTROMETHORPHAN
  4. UNSPECIFIED INGREDIENT [Suspect]
     Active Substance: UNSPECIFIED INGREDIENT
  5. vitaman d [Concomitant]
  6. vitaman b 12 [Concomitant]

REACTIONS (2)
  - Hallucination [None]
  - Neurotoxicity [None]

NARRATIVE: CASE EVENT DATE: 20211022
